FAERS Safety Report 7629795-0 (Version None)
Quarter: 2011Q3

REPORT INFORMATION
  Report Type: 
  Country: None (occurrence: None)
  Receive Date: 20110722
  Receipt Date: 20110718
  Transmission Date: 20111222
  Serious: Yes (Other)
  Sender: FDA-Public Use
  Company Number: CA-PFIZER INC-2011104521

PATIENT
  Age: 58 Year
  Sex: Female

DRUGS (1)
  1. XALATAN [Suspect]
     Dosage: IN ONE EYE
     Route: 047
     Dates: start: 20110201

REACTIONS (2)
  - MADAROSIS [None]
  - EYE INFECTION FUNGAL [None]
